FAERS Safety Report 12786654 (Version 1)
Quarter: 2016Q3

REPORT INFORMATION
  Report Type: Spontaneous
  Country: US (occurrence: US)
  Receive Date: 20160927
  Receipt Date: 20160927
  Transmission Date: 20161109
  Serious: Yes (Death)
  Sender: FDA-Public Use
  Company Number: None

PATIENT
  Age: 70 Year
  Sex: Female

DRUGS (2)
  1. PACLITAXEL. [Suspect]
     Active Substance: PACLITAXEL
     Indication: OVARIAN CANCER
     Dosage: PACLITAXEL 124 MG - INTRAVENOUS - QW CYCLE
     Route: 042
     Dates: start: 20160427, end: 201609
  2. AVASTIN [Suspect]
     Active Substance: BEVACIZUMAB
     Indication: OVARIAN CANCER
     Dosage: AVASTIN 604MG - INTRAVENOUS - Q 2 WEEKS
     Route: 042
     Dates: start: 20140620, end: 201609

REACTIONS (1)
  - Death [None]

NARRATIVE: CASE EVENT DATE: 201609
